FAERS Safety Report 7347395-7 (Version None)
Quarter: 2011Q1

REPORT INFORMATION
  Report Type: 
  Country: None (occurrence: None)
  Receive Date: 20110311
  Receipt Date: 20110301
  Transmission Date: 20110831
  Serious: Yes (Other)
  Sender: FDA-Public Use
  Company Number: IT-JNJFOC-20110301213

PATIENT
  Age: 22 Year
  Sex: Male

DRUGS (2)
  1. INFLIXIMAB, RECOMBINANT [Suspect]
     Route: 042
  2. INFLIXIMAB, RECOMBINANT [Suspect]
     Indication: BEHCET'S SYNDROME
     Route: 042

REACTIONS (2)
  - PULMONARY TUBERCULOSIS [None]
  - LEGIONELLA INFECTION [None]
